FAERS Safety Report 5320826-X (Version None)
Quarter: 2007Q2

REPORT INFORMATION
  Report Type: 
  Country: None (occurrence: None)
  Receive Date: 20070509
  Receipt Date: 20070502
  Transmission Date: 20071010
  Serious: Yes (Hospitalization)
  Sender: FDA-Public Use
  Company Number: US-MERCK-0705USA00625

PATIENT

DRUGS (1)
  1. INVANZ [Suspect]
     Indication: INFECTION
     Route: 051

REACTIONS (1)
  - UNRESPONSIVE TO STIMULI [None]
